FAERS Safety Report 5881367-4 (Version None)
Quarter: 2008Q3

REPORT INFORMATION
  Report Type: 
  Country: None (occurrence: None)
  Receive Date: 20080912
  Receipt Date: 20080627
  Transmission Date: 20090109
  Serious: No
  Sender: FDA-Public Use
  Company Number: US-ABBOTT-08P-163-0459943-00

PATIENT
  Sex: Male

DRUGS (2)
  1. HUMIRA [Suspect]
     Indication: ANKYLOSING SPONDYLITIS
     Dosage: 40 MG ON DAY 1
     Route: 058
     Dates: start: 20080613, end: 20080613
  2. HUMIRA [Suspect]
     Route: 058

REACTIONS (2)
  - ARTHRALGIA [None]
  - INJECTION SITE HAEMATOMA [None]
